FAERS Safety Report 10010707 (Version 2)
Quarter: 2014Q1

REPORT INFORMATION
  Report Type: Spontaneous
  Country: AU (occurrence: None)
  Receive Date: 20140311
  Receipt Date: 20140324
  Transmission Date: 20141002
  Serious: Yes (Hospitalization)
  Sender: FDA-Public Use
  Company Number: AUR-APL-2014-02569

PATIENT
  Age: 71 Year
  Sex: Female
  Weight: 87 kg

DRUGS (15)
  1. METFORMIN (METFORMIN) [Suspect]
     Indication: TYPE 2 DIABETES MELLITUS
     Route: 048
     Dates: start: 20130701
  2. CLONAZEPAM (CLONAZEPAM) (CLONAZEPAM) [Concomitant]
  3. PARIET (RABEPRAZOLE SODIUM) [Concomitant]
  4. PREDNISOLONE (PREDNISOLONE) [Concomitant]
  5. VITAMIN B12 (CYANCOBALAMIN) [Concomitant]
  6. METHOTREXATE (METHOTREXATE) [Concomitant]
  7. FOLIC ACID (FOLIC ACID) [Concomitant]
  8. PIOGLITAZONE (PIOGLITAZONE) [Concomitant]
  9. ATORVASTATIN (ATORVASTATIN) [Concomitant]
  10. NIZAC (NIZATIDINE) [Concomitant]
  11. MICARDIS (TELMISARTAN) [Concomitant]
  12. OSTELIN (ERGOCALCIFEROL) [Concomitant]
  13. CRANBERRY (VACCINIUM MACROCARPON) [Concomitant]
  14. OVESTIN (ESTRIOL) [Concomitant]
  15. GLICLAZIDE (GLICLAZIDE) [Concomitant]

REACTIONS (1)
  - Faecaloma [None]
